FAERS Safety Report 11430154 (Version 1)
Quarter: 2015Q3

REPORT INFORMATION
  Report Type: Spontaneous
  Country: US (occurrence: US)
  Receive Date: 20150828
  Receipt Date: 20150828
  Transmission Date: 20151125
  Serious: No
  Sender: FDA-Public Use
  Company Number: US-ROCHE-1108890

PATIENT
  Sex: Male

DRUGS (6)
  1. COPEGUS [Suspect]
     Active Substance: RIBAVIRIN
     Indication: CHRONIC HEPATITIS C
     Dosage: 600/600
     Route: 048
     Dates: start: 20120826
  2. OXYCODONE [Concomitant]
     Active Substance: OXYCODONE
     Indication: BACK PAIN
     Route: 065
  3. PEGASYS [Suspect]
     Active Substance: PEGINTERFERON ALFA-2A
     Indication: CHRONIC HEPATITIS C
     Route: 058
     Dates: start: 20120826
  4. PEGASYS [Suspect]
     Active Substance: PEGINTERFERON ALFA-2A
     Route: 058
  5. INCIVEK [Suspect]
     Active Substance: TELAPREVIR
     Indication: CHRONIC HEPATITIS C
     Route: 065
     Dates: start: 20120826, end: 20121103
  6. DILAUDID [Concomitant]
     Active Substance: HYDROMORPHONE HYDROCHLORIDE
     Indication: PAIN
     Route: 065

REACTIONS (30)
  - Dysphonia [Unknown]
  - Oedema [Recovering/Resolving]
  - Renal pain [Unknown]
  - Arthralgia [Unknown]
  - Abdominal pain [Unknown]
  - Skin burning sensation [Unknown]
  - White blood cell count abnormal [Unknown]
  - Dry throat [Unknown]
  - Herpes zoster [Recovering/Resolving]
  - Rash pruritic [Recovering/Resolving]
  - Paraesthesia [Unknown]
  - Musculoskeletal disorder [Unknown]
  - Neck pain [Unknown]
  - Amnesia [Unknown]
  - Back pain [Unknown]
  - Dyspnoea [Unknown]
  - Platelet count decreased [Unknown]
  - Glassy eyes [Unknown]
  - Scar [Unknown]
  - Insomnia [Unknown]
  - Muscle twitching [Unknown]
  - Irritability [Unknown]
  - Feeling of body temperature change [Unknown]
  - Anxiety [Unknown]
  - Cough [Unknown]
  - Rash [Unknown]
  - Peripheral swelling [Unknown]
  - Myalgia [Not Recovered/Not Resolved]
  - Impatience [Unknown]
  - Dry mouth [Unknown]
